FAERS Safety Report 9707234 (Version 1)
Quarter: 2013Q4

REPORT INFORMATION
  Report Type: Spontaneous
  Country: US (occurrence: US)
  Receive Date: 20131125
  Receipt Date: 20131125
  Transmission Date: 20140711
  Serious: No
  Sender: FDA-Public Use
  Company Number: US-MALLINCKRODT-T201304695

PATIENT
  Age: 73 Year
  Sex: Female

DRUGS (3)
  1. KIT FOR THE PREPARATION OF TECHNETIUM (TC-99M) SESTAMIBI INJECTION [Suspect]
     Indication: RADIOISOTOPE SCAN
     Dosage: UNK, SINGLE
     Route: 042
     Dates: start: 20131021, end: 20131021
  2. ULTRA-TECHNEKOW DTE [Suspect]
     Indication: RADIOISOTOPE SCAN
     Dosage: 8.3 MCI, SINGLE (REST)
     Route: 042
     Dates: start: 20131021, end: 20131021
  3. ULTRA-TECHNEKOW DTE [Suspect]
     Dosage: 24.5 MCI, SINGLE (STRESS)
     Route: 042
     Dates: start: 20131021, end: 20131021

REACTIONS (2)
  - Dyspnoea [Recovered/Resolved]
  - Bronchial secretion retention [Recovered/Resolved]
